FAERS Safety Report 21337502 (Version 2)
Quarter: 2022Q3

REPORT INFORMATION
  Report Type: Spontaneous
  Country: US (occurrence: US)
  Receive Date: 20220915
  Receipt Date: 20220930
  Transmission Date: 20221027
  Serious: Yes (Other)
  Sender: FDA-Public Use
  Company Number: US-TEVA-2022-US-2071828

PATIENT
  Sex: Male

DRUGS (32)
  1. METHOTREXATE [Suspect]
     Active Substance: METHOTREXATE
     Indication: Hydroa vacciniforme
     Dosage: 7.5 MG ONCE IN WEEK
     Route: 048
     Dates: start: 201607
  2. METHOTREXATE [Suspect]
     Active Substance: METHOTREXATE
     Indication: Lymphoma
     Dosage: 20 MG ONCE IN WEEK
     Route: 048
     Dates: end: 201702
  3. METHOTREXATE [Suspect]
     Active Substance: METHOTREXATE
     Dosage: 7.5 MG ONCE IN WEEK
     Route: 048
     Dates: start: 201709, end: 2018
  4. METHOTREXATE [Suspect]
     Active Substance: METHOTREXATE
     Dosage: 15 MG ONCE IN WEEK
     Route: 048
  5. PREDNISONE [Suspect]
     Active Substance: PREDNISONE
     Indication: Hydroa vacciniforme
     Dosage: 40 MILLIGRAM DAILY; AS A PART OF METHOTREXATE AND PREDNISONE
     Route: 065
     Dates: end: 201702
  6. PREDNISONE [Suspect]
     Active Substance: PREDNISONE
     Indication: Lymphoma
     Dosage: AS A PART OF THALIDOMIDE AND PREDNISONE
     Route: 065
     Dates: start: 201802, end: 201804
  7. PREDNISONE [Suspect]
     Active Substance: PREDNISONE
     Dosage: 20 MILLIGRAM DAILY;
     Route: 065
     Dates: start: 2018, end: 2018
  8. PREDNISONE [Suspect]
     Active Substance: PREDNISONE
     Dosage: AS A PART OF CHOEP REGIMEN
     Route: 065
     Dates: start: 201808
  9. MYCOPHENOLATE MOFETIL [Suspect]
     Active Substance: MYCOPHENOLATE MOFETIL
     Indication: Hydroa vacciniforme
     Dosage: 1000 MILLIGRAM DAILY;
     Route: 065
     Dates: start: 2017, end: 2017
  10. MYCOPHENOLATE MOFETIL [Suspect]
     Active Substance: MYCOPHENOLATE MOFETIL
     Indication: Lymphoma
  11. DOXORUBICIN [Suspect]
     Active Substance: DOXORUBICIN
     Indication: Hydroa vacciniforme
     Dosage: AS A PART OF CHOEP REGIMEN
     Route: 065
     Dates: start: 201808
  12. DOXORUBICIN [Suspect]
     Active Substance: DOXORUBICIN
     Indication: Lymphoma
  13. ETOPOSIDE [Suspect]
     Active Substance: ETOPOSIDE
     Indication: Hydroa vacciniforme
     Dosage: AS A PART OF CHOEP REGIMEN
     Route: 065
     Dates: start: 201808
  14. ETOPOSIDE [Suspect]
     Active Substance: ETOPOSIDE
     Indication: Lymphoma
  15. VINCRISTINE [Suspect]
     Active Substance: VINCRISTINE
     Indication: Hydroa vacciniforme
     Dosage: AS A PART OF CHOEP REGIMEN
     Route: 065
     Dates: start: 201808
  16. VINCRISTINE [Suspect]
     Active Substance: VINCRISTINE
     Indication: Lymphoma
  17. CEPHALEXIN [Suspect]
     Active Substance: CEPHALEXIN
     Indication: Hydroa vacciniforme
     Dosage: TOPICAL AND SYSTEMIC
     Route: 061
     Dates: start: 2015, end: 201607
  18. CEPHALEXIN [Suspect]
     Active Substance: CEPHALEXIN
     Indication: Lymphoma
  19. CLINDAMYCIN [Suspect]
     Active Substance: CLINDAMYCIN
     Indication: Hydroa vacciniforme
     Dosage: SYSTEMIC ROUTE
     Route: 065
     Dates: start: 2015, end: 201607
  20. CLINDAMYCIN [Suspect]
     Active Substance: CLINDAMYCIN
     Indication: Lymphoma
  21. SULFAMETHOXAZOLE\TRIMETHOPRIM [Suspect]
     Active Substance: SULFAMETHOXAZOLE\TRIMETHOPRIM
     Indication: Hydroa vacciniforme
     Dosage: TOPICAL AND SYSTEMIC
     Route: 061
     Dates: start: 2015, end: 201607
  22. SULFAMETHOXAZOLE\TRIMETHOPRIM [Suspect]
     Active Substance: SULFAMETHOXAZOLE\TRIMETHOPRIM
     Indication: Lymphoma
  23. DAPSONE [Suspect]
     Active Substance: DAPSONE
     Indication: Hydroa vacciniforme
     Dosage: 50 MILLIGRAM DAILY;
     Route: 065
     Dates: start: 2017, end: 2017
  24. DAPSONE [Suspect]
     Active Substance: DAPSONE
     Indication: Lymphoma
     Dosage: 150 MILLIGRAM DAILY;
     Route: 065
     Dates: start: 2017, end: 2017
  25. THALIDOMIDE [Suspect]
     Active Substance: THALIDOMIDE
     Indication: Hydroa vacciniforme
     Route: 065
     Dates: start: 201802, end: 201804
  26. THALIDOMIDE [Suspect]
     Active Substance: THALIDOMIDE
     Indication: Lymphoma
  27. CYCLOPHOSPHAMIDE [Suspect]
     Active Substance: CYCLOPHOSPHAMIDE
     Indication: Hydroa vacciniforme
     Dosage: AS A PART OF CHOEP REGIMEN
     Route: 065
     Dates: start: 201808
  28. CYCLOPHOSPHAMIDE [Suspect]
     Active Substance: CYCLOPHOSPHAMIDE
     Indication: Lymphoma
  29. ROMIDEPSIN [Suspect]
     Active Substance: ROMIDEPSIN
     Indication: Hydroa vacciniforme
     Route: 065
     Dates: start: 2018, end: 2018
  30. ROMIDEPSIN [Suspect]
     Active Substance: ROMIDEPSIN
     Indication: Lymphoma
  31. CLINDAMYCIN [Suspect]
     Active Substance: CLINDAMYCIN
     Indication: Hydroa vacciniforme
     Route: 061
     Dates: start: 2015, end: 201607
  32. CLINDAMYCIN [Suspect]
     Active Substance: CLINDAMYCIN
     Indication: Lymphoma

REACTIONS (7)
  - Pancytopenia [Unknown]
  - Hepatic function abnormal [Unknown]
  - Diarrhoea [Unknown]
  - Nausea [Unknown]
  - Vomiting [Unknown]
  - Asthenia [Unknown]
  - Drug ineffective [Unknown]
